FAERS Safety Report 13297884 (Version 1)
Quarter: 2017Q1

REPORT INFORMATION
  Report Type: Spontaneous
  Country: US (occurrence: US)
  Receive Date: 20170306
  Receipt Date: 20170306
  Transmission Date: 20170428
  Serious: No
  Sender: FDA-Public Use
  Company Number: US-ASTRAZENECA-2017SE21364

PATIENT
  Sex: Female

DRUGS (1)
  1. CRESTOR [Suspect]
     Active Substance: ROSUVASTATIN CALCIUM
     Dosage: UNKNOWN
     Route: 048
     Dates: end: 201608

REACTIONS (5)
  - Pain [Unknown]
  - Myalgia [Unknown]
  - Headache [Unknown]
  - Mobility decreased [Unknown]
  - Neuralgia [Unknown]
